FAERS Safety Report 25189044 (Version 2)
Quarter: 2025Q2

REPORT INFORMATION
  Report Type: Spontaneous
  Country: PL (occurrence: PL)
  Receive Date: 20250411
  Receipt Date: 20250509
  Transmission Date: 20250717
  Serious: Yes (Life-Threatening, Other)
  Sender: AUROBINDO
  Company Number: PL-URPL-1-2716-2020

PATIENT
  Age: 48 Year
  Sex: Female
  Weight: 80 kg

DRUGS (2)
  1. METOPROLOL [Suspect]
     Active Substance: METOPROLOL
     Indication: Product used for unknown indication
     Route: 048
     Dates: start: 20200516, end: 20200516
  2. ALCOHOL [Concomitant]
     Active Substance: ALCOHOL
     Indication: Product used for unknown indication
     Route: 048
     Dates: start: 20200516, end: 20200516

REACTIONS (2)
  - Suicide attempt [Unknown]
  - Toxicity to various agents [Unknown]
